FAERS Safety Report 15048458 (Version 4)
Quarter: 2018Q3

REPORT INFORMATION
  Report Type: Report from Study
  Country: US (occurrence: US)
  Receive Date: 20180622
  Receipt Date: 20180716
  Transmission Date: 20181010
  Serious: Yes (Other)
  Sender: FDA-Public Use
  Company Number: US-AMGEN-USASP2018083011

PATIENT
  Age: 56 Year
  Sex: Female

DRUGS (3)
  1. ENBREL [Suspect]
     Active Substance: ETANERCEPT
     Dosage: UNK UNK, QWK
     Route: 065
     Dates: start: 20180614, end: 2018
  2. ENBREL [Suspect]
     Active Substance: ETANERCEPT
     Indication: RHEUMATOID ARTHRITIS
     Dosage: 50 MG, QWK
     Route: 065
     Dates: start: 20180419, end: 2018
  3. ENBREL [Suspect]
     Active Substance: ETANERCEPT
     Dosage: UNK UNK, QWK
     Route: 065
     Dates: start: 2018, end: 2018

REACTIONS (10)
  - Arthralgia [Unknown]
  - Patella replacement [Unknown]
  - Joint stiffness [Unknown]
  - Dental cleaning [Unknown]
  - Procedural pain [Unknown]
  - Injection site pruritus [Unknown]
  - Injection site erythema [Unknown]
  - Haemarthrosis [Not Recovered/Not Resolved]
  - Joint effusion [Unknown]
  - Injection site swelling [Unknown]

NARRATIVE: CASE EVENT DATE: 2018
